FAERS Safety Report 18134551 (Version 1)
Quarter: 2020Q3

REPORT INFORMATION
  Report Type: Report from Study
  Country: US (occurrence: US)
  Receive Date: 20200811
  Receipt Date: 20200811
  Transmission Date: 20201103
  Serious: Yes (Other)
  Sender: FDA-Public Use
  Company Number: US-BAYER-2020-158180

PATIENT

DRUGS (1)
  1. ASPIRIN. [Suspect]
     Active Substance: ASPIRIN
     Dosage: 650 MG, BID

REACTIONS (2)
  - Aspirin-exacerbated respiratory disease [None]
  - Nasal congestion [None]
